FAERS Safety Report 6089446-6 (Version None)
Quarter: 2009Q1

REPORT INFORMATION
  Report Type: 
  Country: None (occurrence: None)
  Receive Date: 20090219
  Receipt Date: 20090203
  Transmission Date: 20090719
  Serious: Yes (Death)
  Sender: FDA-Public Use
  Company Number: 8042809

PATIENT
  Age: 50 Year
  Sex: Female

DRUGS (3)
  1. PREDNISOLONE [Suspect]
     Indication: NON-SMALL CELL LUNG CANCER
     Dosage: PO
     Route: 048
     Dates: start: 20020101
  2. CHLOROQUINE PHOSPHATE [Suspect]
     Indication: NON-SMALL CELL LUNG CANCER
     Dosage: 250 MG
     Dates: start: 19950101
  3. HYDROXYCHLOROQUINE SULFATE [Suspect]
     Indication: NON-SMALL CELL LUNG CANCER
     Dates: start: 20020101

REACTIONS (6)
  - LUNG CANCER METASTATIC [None]
  - METASTASES TO CENTRAL NERVOUS SYSTEM [None]
  - PULMONARY FIBROSIS [None]
  - RADIATION INJURY [None]
  - SKIN LESION [None]
  - SMALL CELL LUNG CANCER STAGE UNSPECIFIED [None]
